FAERS Safety Report 5379755-8 (Version None)
Quarter: 2007Q2

REPORT INFORMATION
  Report Type: 
  Country: None (occurrence: None)
  Receive Date: 20070530
  Receipt Date: 20070223
  Transmission Date: 20071010
  Serious: No
  Sender: FDA-Public Use
  Company Number: 2007PV030615

PATIENT
  Age: 64 Year
  Sex: Male
  Weight: 101.6057 kg

DRUGS (12)
  1. BYETTA [Suspect]
     Indication: DIABETES MELLITUS NON-INSULIN-DEPENDENT
     Dosage: 5 MCG;BID;SC; 10 MCG;BID;SC
     Route: 058
     Dates: start: 20061101, end: 20061201
  2. BYETTA [Suspect]
     Indication: DIABETES MELLITUS NON-INSULIN-DEPENDENT
     Dosage: 5 MCG;BID;SC; 10 MCG;BID;SC
     Route: 058
     Dates: start: 20061201
  3. INSULIN ALLERGY SKIN TESTING + DESENSITIZING KIT [Concomitant]
  4. INSULIN [Concomitant]
  5. VASOTEC [Concomitant]
  6. HYTRIN [Concomitant]
  7. LASIX [Concomitant]
  8. HYZAAR [Concomitant]
  9. COLCHICINE [Concomitant]
  10. WELLBUTRIN [Concomitant]
  11. LIPITOR [Concomitant]
  12. TENORMIN [Concomitant]

REACTIONS (4)
  - HEART RATE INCREASED [None]
  - NAUSEA [None]
  - SINUS TACHYCARDIA [None]
  - WEIGHT DECREASED [None]
